FAERS Safety Report 6914904-9 (Version None)
Quarter: 2010Q3

REPORT INFORMATION
  Report Type: 
  Country: None (occurrence: None)
  Receive Date: 20100809
  Receipt Date: 20100727
  Transmission Date: 20110219
  Serious: Yes (Other)
  Sender: FDA-Public Use
  Company Number: PHHY2010US49938

PATIENT

DRUGS (1)
  1. ZOMETA [Suspect]

REACTIONS (1)
  - HERPES ZOSTER [None]
